FAERS Safety Report 6655056-2 (Version None)
Quarter: 2010Q1

REPORT INFORMATION
  Report Type: 
  Country: None (occurrence: None)
  Receive Date: 20100329
  Receipt Date: 20100313
  Transmission Date: 20100710
  Serious: Yes (Life-Threatening, Other)
  Sender: FDA-Public Use
  Company Number: US-JNJFOC-20090400330

PATIENT
  Sex: Male
  Weight: 77.11 kg

DRUGS (4)
  1. LEVAQUIN [Suspect]
     Indication: CHRONIC OBSTRUCTIVE PULMONARY DISEASE
     Route: 048
  2. LEVAQUIN [Suspect]
     Route: 048
  3. LEVAQUIN [Suspect]
     Indication: BRONCHITIS
     Route: 048
  4. LEVAQUIN [Suspect]
     Route: 048

REACTIONS (2)
  - BACK PAIN [None]
  - LUNG ADENOCARCINOMA [None]
